FAERS Safety Report 8423093-3 (Version None)
Quarter: 2012Q2

REPORT INFORMATION
  Report Type: 
  Country: None (occurrence: None)
  Receive Date: 20120608
  Receipt Date: 20120530
  Transmission Date: 20120825
  Serious: Yes (Hospitalization)
  Sender: FDA-Public Use
  Company Number: JP-BRISTOL-MYERS SQUIBB COMPANY-16673600

PATIENT
  Age: 59 Year
  Sex: Female

DRUGS (2)
  1. CISPLATIN [Suspect]
     Indication: GASTRIC CANCER
     Dosage: 2 COURSES
  2. TS-1 [Suspect]
     Indication: GASTRIC CANCER
     Dosage: 2 COURSES

REACTIONS (1)
  - CEREBRAL INFARCTION [None]
